FAERS Safety Report 7908603-4 (Version None)
Quarter: 2011Q4

REPORT INFORMATION
  Report Type: 
  Country: None (occurrence: None)
  Receive Date: 20111111
  Receipt Date: 20111109
  Transmission Date: 20120403
  Serious: Yes (Death, Hospitalization)
  Sender: FDA-Public Use
  Company Number: US-PFIZER INC-2011226025

PATIENT
  Age: 84 Year
  Sex: Male

DRUGS (2)
  1. HYDROCHLOROTHIAZIDE [Concomitant]
     Dosage: 25 MG, 1X/DAY
  2. SUNITINIB MALATE [Suspect]
     Indication: METASTATIC RENAL CELL CARCINOMA
     Dosage: 37.5 MG, UNK
     Route: 048
     Dates: start: 20110803, end: 20110830

REACTIONS (6)
  - DYSPNOEA [None]
  - METASTATIC RENAL CELL CARCINOMA [None]
  - NEOPLASM PROGRESSION [None]
  - PNEUMONIA [None]
  - DEATH [None]
  - PLEURAL EFFUSION [None]
